FAERS Safety Report 7982424-9 (Version None)
Quarter: 2011Q4

REPORT INFORMATION
  Report Type: 
  Country: None (occurrence: None)
  Receive Date: 20111214
  Receipt Date: 20111214
  Transmission Date: 20120403
  Serious: Yes (Other)
  Sender: FDA-Public Use
  Company Number: None

PATIENT
  Age: 76 Year
  Sex: Male

DRUGS (10)
  1. DECADRON [Concomitant]
  2. MAXZIDE [Concomitant]
  3. ZOVIRAX [Concomitant]
  4. ATENOLOL [Concomitant]
  5. CHOLECALCIFEROL [Concomitant]
  6. VITAMIN D [Concomitant]
  7. REVLIMID [Suspect]
     Indication: MULTIPLE MYELOMA
     Dosage: 20MG QDX21D/28D ORALLY
     Route: 048
  8. AREDIA [Concomitant]
  9. ASPIRIN [Concomitant]
  10. NAPROXEN [Concomitant]

REACTIONS (1)
  - NEUTROPENIA [None]
